FAERS Safety Report 20277120 (Version 2)
Quarter: 2022Q1

REPORT INFORMATION
  Report Type: Spontaneous
  Country: FR (occurrence: FR)
  Receive Date: 20220102
  Receipt Date: 20220302
  Transmission Date: 20220424
  Serious: Yes (Other)
  Sender: FDA-Public Use
  Company Number: FR-BRISTOL-MYERS SQUIBB COMPANY-BMS-2021-120933

PATIENT
  Age: 81 Year
  Sex: Male
  Weight: 64 kg

DRUGS (4)
  1. OPDIVO [Suspect]
     Active Substance: NIVOLUMAB
     Indication: Mesothelioma
     Dosage: 360 MILLIGRAM
     Route: 042
     Dates: start: 20210709
  2. OPDIVO [Suspect]
     Active Substance: NIVOLUMAB
     Dosage: 320 MILLIGRAM
     Route: 065
  3. YERVOY [Suspect]
     Active Substance: IPILIMUMAB
     Indication: Mesothelioma
     Dosage: 60 MILLIGRAM
     Route: 042
     Dates: start: 20210709
  4. YERVOY [Suspect]
     Active Substance: IPILIMUMAB
     Dosage: 50 MILLIGRAM
     Route: 065

REACTIONS (2)
  - Renal failure [Recovered/Resolved]
  - Prescribed underdose [Unknown]

NARRATIVE: CASE EVENT DATE: 20210820
